FAERS Safety Report 7414325-9 (Version None)
Quarter: 2011Q2

REPORT INFORMATION
  Report Type: 
  Country: None (occurrence: None)
  Receive Date: 20110411
  Receipt Date: 20110411
  Transmission Date: 20111010
  Serious: Yes (Other)
  Sender: FDA-Public Use
  Company Number: None

PATIENT
  Sex: Male
  Weight: 60 kg

DRUGS (1)
  1. IMURAN [Suspect]
     Indication: COLITIS ULCERATIVE
     Dosage: 50MG TWICE A DAY ORAL
     Route: 048
     Dates: start: 20090501

REACTIONS (4)
  - NAUSEA [None]
  - RASH [None]
  - WHITE BLOOD CELL COUNT DECREASED [None]
  - FATIGUE [None]
